FAERS Safety Report 24583065 (Version 1)
Quarter: 2024Q4

REPORT INFORMATION
  Report Type: Spontaneous
  Country: GB (occurrence: GB)
  Receive Date: 20241106
  Receipt Date: 20241106
  Transmission Date: 20250114
  Serious: Yes (Other)
  Sender: ALKEM
  Company Number: GB-ALKEM LABORATORIES LIMITED-GB-ALKEM-2024-13148

PATIENT
  Age: 20 Year
  Sex: Male

DRUGS (1)
  1. MINOCYCLINE [Suspect]
     Active Substance: MINOCYCLINE HYDROCHLORIDE
     Indication: Product used for unknown indication
     Dosage: 100 MILLIGRAM
     Route: 065

REACTIONS (1)
  - Autoimmune hepatitis [Unknown]
